FAERS Safety Report 5792143-5 (Version None)
Quarter: 2008Q2

REPORT INFORMATION
  Report Type: 
  Country: None (occurrence: None)
  Receive Date: 20080626
  Receipt Date: 20080616
  Transmission Date: 20081010
  Serious: Yes (Other)
  Sender: FDA-Public Use
  Company Number: TR-ELI_LILLY_AND_COMPANY-TR200806004021

PATIENT
  Sex: Female
  Weight: 126 kg

DRUGS (5)
  1. HUMALOG MIX 75/25 [Suspect]
     Indication: DIABETES MELLITUS
     Dosage: 30 U, EACH MORNING
     Route: 058
     Dates: start: 20080101, end: 20080101
  2. HUMALOG MIX 75/25 [Suspect]
     Dosage: 25 IU, EACH EVENING
     Route: 058
     Dates: start: 20080101, end: 20080101
  3. HUMALOG MIX 75/25 [Suspect]
     Dosage: 37 IU, EACH MORNING
     Route: 058
     Dates: start: 20080101
  4. HUMALOG MIX 75/25 [Suspect]
     Dosage: 30 IU, EACH EVENING
     Route: 058
     Dates: start: 20080101
  5. HUMULIN 70/30 [Concomitant]
     Indication: DIABETES MELLITUS
     Dosage: UNK, UNKNOWN
     Route: 058
     Dates: start: 20020101, end: 20080101

REACTIONS (5)
  - ANOREXIA [None]
  - ASTHENIA [None]
  - BLOOD GLUCOSE INCREASED [None]
  - CHOLECYSTOSTOMY [None]
  - HYPOAESTHESIA [None]
